FAERS Safety Report 10747236 (Version 6)
Quarter: 2015Q3

REPORT INFORMATION
  Report Type: Spontaneous
  Country: US (occurrence: US)
  Receive Date: 20150129
  Receipt Date: 20150831
  Transmission Date: 20151125
  Serious: No
  Sender: FDA-Public Use
  Company Number: US-LEO PHARMA-232066

PATIENT
  Age: 47 Year
  Sex: Female

DRUGS (22)
  1. AMITIZA [Concomitant]
     Active Substance: LUBIPROSTONE
     Indication: CONSTIPATION
  2. TSH [Concomitant]
     Indication: HYPOTHYROIDISM
  3. PREMARIN [Concomitant]
     Active Substance: ESTROGENS, CONJUGATED
     Indication: MENOPAUSAL SYMPTOMS
  4. PREDNISONE. [Concomitant]
     Active Substance: PREDNISONE
     Indication: NECK PAIN
     Route: 048
  5. NEURONTIN [Concomitant]
     Active Substance: GABAPENTIN
     Indication: INTERVERTEBRAL DISC PROTRUSION
     Route: 048
  6. PROTONIX [Concomitant]
     Active Substance: PANTOPRAZOLE SODIUM
     Indication: GASTROOESOPHAGEAL REFLUX DISEASE
  7. ERYTHROMYCIN. [Concomitant]
     Active Substance: ERYTHROMYCIN
     Indication: CONJUNCTIVITIS
     Dosage: 5MG/GM
     Route: 047
  8. PROVIGIL [Concomitant]
     Active Substance: MODAFINIL
     Indication: NARCOLEPSY
     Route: 048
  9. KEFLEX [Concomitant]
     Active Substance: CEPHALEXIN
     Indication: HYPERSENSITIVITY
  10. AMITIZA [Concomitant]
     Active Substance: LUBIPROSTONE
     Indication: IRRITABLE BOWEL SYNDROME
     Route: 048
  11. CYMBALTA [Concomitant]
     Active Substance: DULOXETINE HYDROCHLORIDE
     Indication: PAIN
  12. LEVOTHYROXINE. [Concomitant]
     Active Substance: LEVOTHYROXINE
     Indication: HYPOTHYROIDISM
  13. CYTOMEL [Concomitant]
     Active Substance: LIOTHYRONINE SODIUM
     Indication: HYPOTHYROIDISM
  14. NUVIGIL [Concomitant]
     Active Substance: ARMODAFINIL
     Indication: NARCOLEPSY
     Route: 048
  15. SYNTHROID [Concomitant]
     Active Substance: LEVOTHYROXINE SODIUM
     Indication: HYPOTHYROIDISM
  16. MOBIC [Concomitant]
     Active Substance: MELOXICAM
     Indication: OSTEOARTHRITIS
  17. AZITHROMYCIN [Concomitant]
     Active Substance: AZITHROMYCIN ANHYDROUS
     Indication: UPPER RESPIRATORY TRACT INFECTION
  18. PICATO [Suspect]
     Active Substance: INGENOL MEBUTATE
     Indication: ACTINIC KERATOSIS
     Dates: start: 201404, end: 201404
  19. CYMBALTA [Concomitant]
     Active Substance: DULOXETINE HYDROCHLORIDE
     Indication: ANXIETY
  20. FLEXERIL [Concomitant]
     Active Substance: CYCLOBENZAPRINE HYDROCHLORIDE
     Indication: NECK PAIN
     Route: 048
  21. AST [Concomitant]
     Indication: HYPOTHYROIDISM
  22. VITAMIN B1 [Concomitant]
     Active Substance: THIAMINE HYDROCHLORIDE
     Indication: INTERVERTEBRAL DISC PROTRUSION

REACTIONS (8)
  - Application site scar [Not Recovered/Not Resolved]
  - Application site erythema [Recovered/Resolved]
  - Application site scab [Recovered/Resolved]
  - Application site swelling [Recovered/Resolved]
  - Application site vesicles [Recovered/Resolved]
  - Application site ulcer [Recovered/Resolved]
  - Application site discharge [Recovered/Resolved]
  - Application site laceration [Recovered/Resolved]
